FAERS Safety Report 4775841-1 (Version None)
Quarter: 2005Q3

REPORT INFORMATION
  Report Type: 
  Country: None (occurrence: None)
  Receive Date: 20050922
  Receipt Date: 20050318
  Transmission Date: 20060218
  Serious: Yes (Hospitalization, Disabling, Other)
  Sender: FDA-Public Use
  Company Number: US-MERCK-0503USA03384

PATIENT
  Age: 56 Year
  Sex: Male
  Weight: 157 kg

DRUGS (3)
  1. VIOXX [Suspect]
     Indication: ARTHRITIS
     Route: 048
     Dates: start: 20020801, end: 20030501
  2. IBUPROFEN [Concomitant]
     Route: 065
  3. ACTOS [Concomitant]
     Route: 065

REACTIONS (24)
  - ABDOMINAL HERNIA [None]
  - ANAEMIA [None]
  - BRADYCARDIA [None]
  - CEREBROVASCULAR ACCIDENT [None]
  - CEREBROVASCULAR DISORDER [None]
  - CHOLELITHIASIS [None]
  - DEPRESSION [None]
  - DIABETES MELLITUS INADEQUATE CONTROL [None]
  - DIABETIC NEPHROPATHY [None]
  - DYSPNOEA [None]
  - FALL [None]
  - GASTRITIS EROSIVE [None]
  - HEAD INJURY [None]
  - HYPERTENSION [None]
  - HYPOXIA [None]
  - JOINT DISLOCATION [None]
  - LACUNAR INFARCTION [None]
  - NEPHROLITHIASIS [None]
  - OSTEOARTHRITIS [None]
  - PANCREATIC CARCINOMA [None]
  - SICK SINUS SYNDROME [None]
  - SWELLING [None]
  - SYNCOPE [None]
  - TRANSIENT ISCHAEMIC ATTACK [None]
